FAERS Safety Report 13701344 (Version 1)
Quarter: 2017Q2

REPORT INFORMATION
  Report Type: Spontaneous
  Country: US (occurrence: US)
  Receive Date: 20170629
  Receipt Date: 20170629
  Transmission Date: 20170830
  Serious: No
  Sender: FDA-Public Use
  Company Number: US-ALLERGAN-1721941US

PATIENT
  Sex: Male
  Weight: 96.6 kg

DRUGS (1)
  1. VIBERZI [Suspect]
     Active Substance: ELUXADOLINE
     Indication: IRRITABLE BOWEL SYNDROME
     Dosage: 100 MG, QD
     Route: 048
     Dates: start: 201702, end: 20170519

REACTIONS (5)
  - Wrong technique in product usage process [Unknown]
  - Ocular icterus [Not Recovered/Not Resolved]
  - Abdominal pain [Unknown]
  - Abdominal distension [Unknown]
  - Blood bilirubin increased [Unknown]
